FAERS Safety Report 9548960 (Version 2)
Quarter: 2013Q3

REPORT INFORMATION
  Report Type: Report from Study
  Country: IT (occurrence: IT)
  Receive Date: 20130924
  Receipt Date: 20130924
  Transmission Date: 20140515
  Serious: Yes (Hospitalization, Other)
  Sender: FDA-Public Use
  Company Number: PHHO2013IT010117

PATIENT
  Sex: 0

DRUGS (5)
  1. AFINITOR [Suspect]
     Indication: BREAST CANCER METASTATIC
     Dosage: 10 MG, QD (/DIE)
     Route: 048
     Dates: start: 20130424
  2. EXEMESTANE [Suspect]
     Indication: BREAST CANCER METASTATIC
     Dosage: 25 MG, QD (DIE)
     Route: 048
     Dates: start: 20130424
  3. MODURETIC [Concomitant]
     Indication: HYPERTENSION
     Dosage: UNK
     Dates: start: 20030102
  4. ISOPTIN [Concomitant]
     Indication: HYPERTENSION
     Dosage: UNK
     Dates: start: 20030102
  5. REPAGLINIDE [Concomitant]
     Indication: HYPERGLYCAEMIA
     Dosage: UNK
     Dates: start: 20030102

REACTIONS (4)
  - Renal colic [Unknown]
  - Pyrexia [Recovered/Resolved]
  - Back pain [Recovered/Resolved]
  - Strangury [Recovered/Resolved]
